FAERS Safety Report 18629772 (Version 1)
Quarter: 2020Q4

REPORT INFORMATION
  Report Type: Spontaneous
  Country: US (occurrence: US)
  Receive Date: 20201217
  Receipt Date: 20201217
  Transmission Date: 20210114
  Serious: Yes (Hospitalization, Other)
  Sender: FDA-Public Use
  Company Number: US-MYLANLABS-2020M1103265

PATIENT
  Age: 6 Decade
  Sex: Female

DRUGS (10)
  1. BACLOFEN. [Suspect]
     Active Substance: BACLOFEN
     Indication: STIFF PERSON SYNDROME
     Dosage: 10 MILLIGRAM, Q6H
     Route: 048
  2. PREDNISONE. [Suspect]
     Active Substance: PREDNISONE
     Indication: STIFF PERSON SYNDROME
     Route: 048
  3. BACLOFEN. [Suspect]
     Active Substance: BACLOFEN
     Dosage: 475.1 MICROGRAM, QD
     Route: 037
  4. GABAPENTIN. [Concomitant]
     Active Substance: GABAPENTIN
     Indication: NEURALGIA
     Route: 065
  5. PREGABALIN. [Concomitant]
     Active Substance: PREGABALIN
     Indication: NEURALGIA
     Route: 065
  6. IMMUNE GLOBULIN [Concomitant]
     Indication: STIFF PERSON SYNDROME
     Route: 042
  7. METHYLPREDNISOLONE. [Suspect]
     Active Substance: METHYLPREDNISOLONE
     Indication: STIFF PERSON SYNDROME
     Route: 042
  8. BACLOFEN. [Suspect]
     Active Substance: BACLOFEN
     Indication: STIFF PERSON SYNDROME
     Dosage: 100 MICROGRAM, QD
     Route: 037
  9. TIZANIDINE. [Suspect]
     Active Substance: TIZANIDINE
     Indication: STIFF PERSON SYNDROME
     Dosage: 6 MILLIGRAM, Q8H
     Route: 048
  10. DIAZEPAM. [Suspect]
     Active Substance: DIAZEPAM
     Indication: STIFF PERSON SYNDROME
     Dosage: 5 MILLIGRAM, Q6H
     Route: 048

REACTIONS (4)
  - Epistaxis [Unknown]
  - Disease progression [Recovering/Resolving]
  - Scoliosis [Recovering/Resolving]
  - Drug ineffective [Unknown]
